FAERS Safety Report 5381210-6 (Version None)
Quarter: 2007Q3

REPORT INFORMATION
  Report Type: 
  Country: None (occurrence: None)
  Receive Date: 20070706
  Receipt Date: 20070625
  Transmission Date: 20080115
  Serious: Yes (Other)
  Sender: FDA-Public Use
  Company Number: US-PFIZER INC-2007053341

PATIENT
  Sex: Female
  Weight: 36.4 kg

DRUGS (7)
  1. CHANTIX [Suspect]
     Indication: EX-SMOKER
  2. ALL OTHER THERAPEUTIC PRODUCTS [Concomitant]
     Indication: CHRONIC OBSTRUCTIVE PULMONARY DISEASE
  3. NORVASC [Concomitant]
     Indication: HYPERTENSION
  4. ZOLOFT [Concomitant]
  5. MULTIVITAMIN [Concomitant]
  6. HYDRALAZINE HCL [Concomitant]
  7. ASPIRIN [Concomitant]

REACTIONS (2)
  - DECREASED APPETITE [None]
  - WEIGHT DECREASED [None]
